FAERS Safety Report 8000936-9 (Version None)
Quarter: 2011Q4

REPORT INFORMATION
  Report Type: 
  Country: None (occurrence: None)
  Receive Date: 20111222
  Receipt Date: 20111130
  Transmission Date: 20120403
  Serious: Yes (Death)
  Sender: FDA-Public Use
  Company Number: JP-AMGEN-JPNSP2011053384

PATIENT
  Age: 78 Year
  Sex: Female

DRUGS (4)
  1. ROMIPLATE [Suspect]
     Dosage: 8 MUG/KG, QWK
     Route: 058
     Dates: start: 20111003
  2. ROMIPLATE [Suspect]
     Dosage: 2 MUG/KG, QWK
     Route: 058
     Dates: start: 20110711
  3. ROMIPLATE [Suspect]
     Dosage: 4 MUG/KG, QWK
     Route: 058
     Dates: start: 20110808
  4. ROMIPLATE [Suspect]
     Indication: IDIOPATHIC THROMBOCYTOPENIC PURPURA
     Dosage: 1 MUG/KG, QWK
     Route: 058
     Dates: start: 20110627

REACTIONS (3)
  - CEREBRAL HAEMORRHAGE [None]
  - ANTIBODY TEST [None]
  - THERAPEUTIC RESPONSE DECREASED [None]
